FAERS Safety Report 23118279 (Version 1)
Quarter: 2023Q4

REPORT INFORMATION
  Report Type: Report from Study
  Country: US (occurrence: US)
  Receive Date: 20231027
  Receipt Date: 20231027
  Transmission Date: 20240110
  Serious: Yes (Other)
  Sender: FDA-Public Use
  Company Number: US-ABBVIE-5468822

PATIENT
  Sex: Female

DRUGS (1)
  1. VENCLEXTA [Suspect]
     Active Substance: VENETOCLAX
     Indication: Chronic lymphocytic leukaemia
     Dosage: FORM STRENGTH: 100MG?TAKE 4 TABLETS BY MOUTH (400MG) EVERY DAY WITH FOOD + WATER
     Route: 048

REACTIONS (2)
  - Neoplasm [Recovering/Resolving]
  - Red blood cell count decreased [Unknown]
